FAERS Safety Report 8446543-5 (Version None)
Quarter: 2012Q2

REPORT INFORMATION
  Report Type: 
  Country: None (occurrence: None)
  Receive Date: 20120618
  Receipt Date: 20120605
  Transmission Date: 20120825
  Serious: Yes (Other)
  Sender: FDA-Public Use
  Company Number: NL-ELI_LILLY_AND_COMPANY-NL201206001897

PATIENT
  Sex: Male
  Weight: 100 kg

DRUGS (3)
  1. INSULIN [Concomitant]
     Dosage: UNK, UNKNOWN
  2. INSULIN [Concomitant]
     Dosage: UNK, UNKNOWN
  3. BYETTA [Suspect]
     Dosage: UNK, UNKNOWN
     Dates: start: 20111101

REACTIONS (2)
  - LUNG NEOPLASM MALIGNANT [None]
  - WEIGHT DECREASED [None]
